FAERS Safety Report 24888778 (Version 2)
Quarter: 2025Q1

REPORT INFORMATION
  Report Type: Spontaneous
  Country: JP (occurrence: JP)
  Receive Date: 20250127
  Receipt Date: 20250226
  Transmission Date: 20250408
  Serious: Yes (Death)
  Sender: NOVARTIS
  Company Number: JP-002147023-NVSJ2025JP001287

PATIENT
  Sex: Male

DRUGS (2)
  1. TAFINLAR [Suspect]
     Active Substance: DABRAFENIB MESYLATE
     Indication: Pancreatic carcinoma
     Route: 048
     Dates: start: 202408
  2. MEKINIST [Suspect]
     Active Substance: TRAMETINIB DIMETHYL SULFOXIDE
     Indication: Pancreatic carcinoma
     Route: 048
     Dates: start: 202408

REACTIONS (2)
  - Pancreatic carcinoma [Fatal]
  - Malignant neoplasm progression [Fatal]
